FAERS Safety Report 21886046 (Version 2)
Quarter: 2023Q1

REPORT INFORMATION
  Report Type: Report from Study
  Country: IT (occurrence: IT)
  Receive Date: 20230119
  Receipt Date: 20230210
  Transmission Date: 20230418
  Serious: Yes (Hospitalization, Other)
  Sender: FDA-Public Use
  Company Number: None

PATIENT
  Age: 69 Year
  Sex: Female

DRUGS (2)
  1. TAVOR (LORAZEPAM) [Suspect]
     Active Substance: LORAZEPAM
     Dosage: 1 CONFEZIONE
     Route: 048
  2. ALPRAZOLAM [Suspect]
     Active Substance: ALPRAZOLAM
     Dosage: UNK, (2 EMPTY BOTTLES)
     Route: 048
     Dates: start: 20220323, end: 20220323

REACTIONS (3)
  - Drug abuse [Unknown]
  - Suicide attempt [Recovered/Resolved]
  - Sopor [Recovering/Resolving]

NARRATIVE: CASE EVENT DATE: 20220323
